FAERS Safety Report 9456330 (Version 4)
Quarter: 2013Q4

REPORT INFORMATION
  Report Type: Spontaneous
  Country: US (occurrence: US)
  Receive Date: 20130813
  Receipt Date: 20131211
  Transmission Date: 20140711
  Serious: No
  Sender: FDA-Public Use
  Company Number: US-PFIZER INC-2013234600

PATIENT
  Sex: Female

DRUGS (2)
  1. LYRICA [Suspect]
     Indication: FIBROMYALGIA
     Dosage: 150 MG, 2X/DAY
     Route: 048
     Dates: start: 2011, end: 201308
  2. LYRICA [Suspect]
     Dosage: 150 MG, 3X/DAY
     Route: 048
     Dates: start: 201308

REACTIONS (5)
  - Fibromyalgia [Recovering/Resolving]
  - Nervous system disorder [Recovering/Resolving]
  - Paraesthesia [Recovering/Resolving]
  - Feeling cold [Unknown]
  - Nervousness [Unknown]
